FAERS Safety Report 12480364 (Version 3)
Quarter: 2016Q3

REPORT INFORMATION
  Report Type: Spontaneous
  Country: IT (occurrence: IT)
  Receive Date: 20160620
  Receipt Date: 20160705
  Transmission Date: 20161109
  Serious: Yes (Hospitalization)
  Sender: FDA-Public Use
  Company Number: IT-ROCHE-1777634

PATIENT
  Age: 60 Year
  Sex: Male

DRUGS (4)
  1. VIEKIRAX [Interacting]
     Active Substance: OMBITASVIR\PARITAPREVIR\RITONAVIR
     Indication: CHRONIC HEPATITIS C
     Dosage: 56 TABLETS PERIOD: 4 MONTHS
     Route: 048
     Dates: start: 20160513
  2. EXVIERA [Interacting]
     Active Substance: DASABUVIR
     Indication: CHRONIC HEPATITIS C
     Dosage: 56 TABLETS PERIOD: 4 MONTHS
     Route: 048
     Dates: start: 20160513
  3. COPEGUS [Suspect]
     Active Substance: RIBAVIRIN
     Indication: CHRONIC HEPATITIS C
     Dosage: 4 MONTHS
     Route: 048
     Dates: start: 20160513
  4. BLOPRESS [Concomitant]
     Active Substance: CANDESARTAN CILEXETIL
     Indication: HYPERTENSION
     Dosage: 28 TABLETS 16 MG
     Route: 048

REACTIONS (3)
  - Cerebral haemorrhage [Recovered/Resolved]
  - Hypertensive crisis [Recovered/Resolved]
  - Drug interaction [Unknown]

NARRATIVE: CASE EVENT DATE: 20160604
